FAERS Safety Report 4630628-5 (Version None)
Quarter: 2005Q2

REPORT INFORMATION
  Report Type: 
  Country: None (occurrence: None)
  Receive Date: 20050408
  Receipt Date: 20050105
  Transmission Date: 20051028
  Serious: Yes (Death, Hospitalization)
  Sender: FDA-Public Use
  Company Number: FR-BRISTOL-MYERS SQUIBB COMPANY-12814232

PATIENT
  Age: 49 Year
  Sex: Female

DRUGS (7)
  1. PARAPLATIN [Suspect]
     Indication: OVARIAN CANCER
     Dosage: 50 MG SOLUTION FOR PERFUSION
     Route: 042
     Dates: start: 20041102, end: 20041102
  2. TAXOL [Concomitant]
     Indication: OVARIAN CANCER
     Dosage: 6 MG/ML CONCENTRATE SOLUTION FOR INFUSION
     Route: 042
     Dates: start: 20041102, end: 20041102
  3. KYTRIL [Concomitant]
     Indication: OVARIAN CANCER
     Route: 042
     Dates: start: 20041102, end: 20041102
  4. POLARAMINE [Concomitant]
     Indication: OVARIAN CANCER
     Route: 030
     Dates: start: 20041102, end: 20041102
  5. SOLU-MEDROL [Concomitant]
     Indication: OVARIAN CANCER
     Route: 042
     Dates: start: 20041102, end: 20041102
  6. AZANTAC [Concomitant]
     Indication: OVARIAN CANCER
     Route: 042
     Dates: start: 20041102, end: 20041102
  7. ELOXATIN [Concomitant]
     Dates: start: 20041206, end: 20050222

REACTIONS (7)
  - ABDOMINAL PAIN [None]
  - ABDOMINAL PAIN UPPER [None]
  - DYSPEPSIA [None]
  - GLOSSODYNIA [None]
  - MALIGNANT NEOPLASM PROGRESSION [None]
  - OVARIAN CANCER [None]
  - TACHYCARDIA [None]
